FAERS Safety Report 12556588 (Version 1)
Quarter: 2016Q3

REPORT INFORMATION
  Report Type: Spontaneous
  Country: ES (occurrence: ES)
  Receive Date: 20160714
  Receipt Date: 20160714
  Transmission Date: 20161109
  Serious: Yes (Hospitalization)
  Sender: FDA-Public Use
  Company Number: PHHY2016ES095685

PATIENT
  Age: 93 Year
  Sex: Male

DRUGS (3)
  1. AMOXICILLIN. [Suspect]
     Active Substance: AMOXICILLIN
     Indication: UPPER RESPIRATORY TRACT INFECTION BACTERIAL
     Dosage: 500 MG, TID
     Route: 048
     Dates: start: 20150302, end: 20150308
  2. SINTROM [Interacting]
     Active Substance: ACENOCOUMAROL
     Indication: CARDIAC VALVE PROSTHESIS USER
     Dosage: DOSAGE ACCORDING TO SPECIFIC SCHEDULE
     Route: 048
     Dates: start: 2005, end: 20150309
  3. FERRO-GRADUMET//FERROUS SULFATE [Concomitant]
     Indication: ANAEMIA
     Dosage: 1 DF, QD
     Route: 048
     Dates: start: 20150302, end: 20150309

REACTIONS (2)
  - Hypocoagulable state [Not Recovered/Not Resolved]
  - Lower gastrointestinal haemorrhage [Not Recovered/Not Resolved]

NARRATIVE: CASE EVENT DATE: 20150309
